FAERS Safety Report 6397657-5 (Version None)
Quarter: 2009Q4

REPORT INFORMATION
  Report Type: 
  Country: None (occurrence: None)
  Receive Date: 20091012
  Receipt Date: 20091009
  Transmission Date: 20100525
  Serious: Yes (Hospitalization)
  Sender: FDA-Public Use
  Company Number: IT-PFIZER INC-2009260958

PATIENT
  Age: 44 Year

DRUGS (3)
  1. ZITHROMAX [Suspect]
     Indication: DERMATITIS ATOPIC
     Dosage: 500 MG TOTAL
     Route: 048
     Dates: start: 20090824, end: 20090825
  2. SECURGIN [Concomitant]
     Dosage: 170 G
     Route: 048
  3. PREDNISONE [Concomitant]
     Dosage: 5 MG
     Route: 048
     Dates: start: 20090822, end: 20090825

REACTIONS (3)
  - DIARRHOEA [None]
  - THROAT TIGHTNESS [None]
  - URTICARIA [None]
